FAERS Safety Report 9290397 (Version 1)
Quarter: 2013Q2

REPORT INFORMATION
  Report Type: Spontaneous
  Country: US (occurrence: None)
  Receive Date: 20130514
  Receipt Date: 20130514
  Transmission Date: 20140414
  Serious: No
  Sender: FDA-Public Use
  Company Number: None

PATIENT
  Age: 63 Year
  Sex: Female
  Weight: 61 kg

DRUGS (2)
  1. LINEZOLID [Suspect]
     Indication: PNEUMONIA
     Route: 048
     Dates: start: 20130307, end: 20130311
  2. CARBAMAZEPINE [Suspect]
     Indication: CONVULSION
     Route: 048
     Dates: start: 20130319

REACTIONS (6)
  - Convulsion [None]
  - Headache [None]
  - Palpitations [None]
  - Tachycardia [None]
  - Agitation [None]
  - Hypertension [None]
